FAERS Safety Report 8738818 (Version 4)
Quarter: 2012Q4

REPORT INFORMATION
  Report Type: 
  Country: US (occurrence: US)
  Receive Date: 20120823
  Receipt Date: 20121121
  Transmission Date: 20130627
  Serious: Yes (Death, Hospitalization, Other)
  Sender: FDA-Public Use
  Company Number: US-PFIZER INC-2012170372

PATIENT
  Age: 81 Year
  Sex: Female
  Weight: 59.86 kg

DRUGS (16)
  1. REVATIO [Suspect]
     Indication: PULMONARY HYPERTENSION
     Dosage: 20 mg, 3x/day
     Route: 048
     Dates: start: 20120220, end: 20120730
  2. TREPROSTINIL SODIUM [Suspect]
     Dosage: UNK
  3. TRACLEER [Concomitant]
     Dosage: 125 mg, 2x/day
     Route: 048
     Dates: end: 20120730
  4. ZETIA [Concomitant]
     Dosage: 10 mg, daily
  5. ATIVAN [Concomitant]
     Dosage: 2 mg, 3x/day
  6. DIGOXIN [Concomitant]
     Dosage: 0.125 mg, daily
  7. KLOR-CON [Concomitant]
     Dosage: 10 mEq, q.48 hours
  8. COUMADINE [Concomitant]
     Dosage: 6 mg, daily
  9. LASIX [Concomitant]
     Dosage: 20 mg, q.48 hours
  10. FERROUS SULFATE [Concomitant]
     Dosage: 325 mg, daily
  11. PROTONIX [Concomitant]
     Dosage: 40 mg, daily
  12. CARDIZEM [Concomitant]
     Dosage: 60 mg, 3x/day
  13. SYNTHROID [Concomitant]
     Dosage: 50 ug, daily
  14. DUONEB [Concomitant]
     Dosage: q.5 hours
  15. LIPITOR [Concomitant]
     Dosage: 40 mg, daily
  16. ALEVE [Concomitant]
     Dosage: UNK p.r.n.

REACTIONS (12)
  - Multi-organ failure [Fatal]
  - Dyspnoea [Unknown]
  - Productive cough [Unknown]
  - Fatigue [Unknown]
  - Asthenia [Unknown]
  - Lung disorder [Unknown]
  - Pneumonia staphylococcal [Unknown]
  - Chronic obstructive pulmonary disease [Unknown]
  - Wheezing [Unknown]
  - Pneumonia fungal [Unknown]
  - Aspergillus test positive [Unknown]
  - Staphylococcus test positive [Unknown]
